FAERS Safety Report 18711003 (Version 2)
Quarter: 2021Q1

REPORT INFORMATION
  Report Type: Other
  Country: CA (occurrence: CA)
  Receive Date: 20210107
  Receipt Date: 20210111
  Transmission Date: 20210419
  Serious: No
  Sender: FDA-Public Use
  Company Number: CA-ROCHE-2743689

PATIENT
  Age: 74 Year
  Sex: Male

DRUGS (18)
  1. SANDOZ AMLODIPINE [Concomitant]
     Active Substance: AMLODIPINE MALEATE
     Indication: BLOOD PRESSURE MEASUREMENT
     Route: 048
  2. TYLENOL [Concomitant]
     Active Substance: ACETAMINOPHEN
     Indication: PREMEDICATION
     Route: 048
     Dates: start: 20201231
  3. RITUXAN [Suspect]
     Active Substance: RITUXIMAB
     Indication: IMMUNOGLOBULIN G4 RELATED DISEASE
     Route: 042
     Dates: start: 20201231
  4. NASONEX [Concomitant]
     Active Substance: MOMETASONE FUROATE
     Dosage: TWO INHALATIONS
     Route: 045
  5. FERROUS SULFATE. [Concomitant]
     Active Substance: FERROUS SULFATE
     Route: 048
  6. RESTASIS [Concomitant]
     Active Substance: CYCLOSPORINE
     Route: 047
  7. SOLU?MEDROL [Concomitant]
     Active Substance: METHYLPREDNISOLONE SODIUM SUCCINATE
     Indication: PREMEDICATION
     Route: 042
     Dates: start: 20201231
  8. EURO D [Concomitant]
     Route: 048
  9. ATIVAN [Concomitant]
     Active Substance: LORAZEPAM
     Dosage: AS REQUIRED
     Route: 048
  10. BASAGLAR [Concomitant]
     Active Substance: INSULIN GLARGINE
     Route: 058
  11. SYMBICORT [Concomitant]
     Active Substance: BUDESONIDE\FORMOTEROL FUMARATE DIHYDRATE
     Dosage: 200?6 MG MICROGRAM(S)
     Route: 055
  12. JAMP ASA [Concomitant]
     Active Substance: ASPIRIN
     Dosage: ENTERIC COATED
     Route: 048
  13. VITALUX ADVANCED [Concomitant]
     Route: 048
  14. RAMIPRIL. [Concomitant]
     Active Substance: RAMIPRIL
     Route: 048
  15. HUMALOG [Concomitant]
     Active Substance: INSULIN LISPRO
     Dosage: VARIOUS UNITS: 8 UNITS IN THE MORNING; 10 UNITS IN THE AFTERNOON AND 6 UNITS AT DINNER.
     Route: 058
  16. NEXIUM [Concomitant]
     Active Substance: ESOMEPRAZOLE MAGNESIUM
     Route: 048
  17. VOLTAREN EMULGEL [Concomitant]
     Active Substance: DICLOFENAC DIETHYLAMINE
     Dosage: AS REQUIRED
     Route: 061
  18. ATORVASTATIN SANDOZ [Concomitant]
     Active Substance: ATORVASTATIN
     Indication: BLOOD CHOLESTEROL
     Route: 048

REACTIONS (6)
  - Infusion related reaction [Recovered/Resolved]
  - Blood pressure systolic abnormal [Unknown]
  - Blood pressure increased [Unknown]
  - Intentional product use issue [Unknown]
  - Heart rate increased [Unknown]
  - Off label use [Unknown]

NARRATIVE: CASE EVENT DATE: 20201231
